FAERS Safety Report 4898909-8 (Version None)
Quarter: 2006Q1

REPORT INFORMATION
  Report Type: 
  Country: None (occurrence: None)
  Receive Date: 20060202
  Receipt Date: 20060126
  Transmission Date: 20060701
  Serious: Yes (Hospitalization)
  Sender: FDA-Public Use
  Company Number: US-KINGPHARMUSA00001-K200600094

PATIENT
  Age: 77 Year
  Sex: Male

DRUGS (14)
  1. ALTACE [Suspect]
     Dosage: 5 MG, QD
     Route: 048
     Dates: end: 20051117
  2. ALTACE [Suspect]
     Dosage: UNK, QD
     Route: 048
     Dates: start: 20051130
  3. LASILIX [Suspect]
     Dosage: 40 MG, QD
     Route: 048
     Dates: end: 20051117
  4. BI-PROFENID [Suspect]
     Dosage: 300 MG, QD
     Route: 048
     Dates: end: 20051117
  5. ASPIRIN [Suspect]
     Dosage: UNK, UNK
     Route: 048
     Dates: end: 20051117
  6. CORDARONE [Concomitant]
     Dosage: 200 MG, UNK
     Route: 048
  7. AMLOR [Concomitant]
     Dosage: 5 MG, UNK
     Route: 048
  8. DISCOTRINE [Concomitant]
     Dosage: 15 MG, UNK
     Route: 062
  9. PRAXILENE [Concomitant]
     Dosage: 200 MG, UNK
     Route: 048
  10. IKOREL [Concomitant]
     Dosage: 10 MG, UNK
     Route: 048
  11. SERETIDE ^ALLEN + HANBURYS LTD^ [Concomitant]
     Dosage: 2,000 UG, UNK
  12. TOPALGIC ^HOUDE^ [Concomitant]
     Dosage: 600 MG, UNK
     Route: 048
  13. SYNACTHENE [Concomitant]
     Dosage: UNK, QW
     Route: 030
  14. ESOMEPRAZOLE [Concomitant]
     Dosage: 40 MG, UNK
     Route: 048

REACTIONS (7)
  - BLOOD CREATININE INCREASED [None]
  - BLOOD UREA INCREASED [None]
  - DRUG INTERACTION [None]
  - MICROLITHIASIS [None]
  - NEPHROLITHIASIS [None]
  - RENAL ATROPHY [None]
  - RENAL FAILURE ACUTE [None]
